FAERS Safety Report 17612584 (Version 1)
Quarter: 2020Q2

REPORT INFORMATION
  Report Type: Spontaneous
  Country: IT (occurrence: IT)
  Receive Date: 20200401
  Receipt Date: 20200401
  Transmission Date: 20200713
  Serious: Yes (Hospitalization)
  Sender: FDA-Public Use
  Company Number: IT-ANIPHARMA-2020-IT-000050

PATIENT
  Age: 33 Year
  Sex: Male

DRUGS (2)
  1. SODIUM ALGINATE [Concomitant]
     Active Substance: SODIUM ALGINATE
  2. LANSOPRAZOLE (NON-SPECIFIC) [Suspect]
     Active Substance: LANSOPRAZOLE
     Indication: DYSPEPSIA
     Dosage: 30 MG DAILY
     Dates: start: 201707

REACTIONS (1)
  - Gitelman^s syndrome [Unknown]
